FAERS Safety Report 14404877 (Version 1)
Quarter: 2018Q1

REPORT INFORMATION
  Report Type: Spontaneous
  Country: BR (occurrence: BR)
  Receive Date: 20180118
  Receipt Date: 20180118
  Transmission Date: 20180509
  Serious: Yes (Other)
  Sender: FDA-Public Use
  Company Number: BR-ORION CORPORATION ORION PHARMA-ENT 2018-0010

PATIENT
  Sex: Female

DRUGS (2)
  1. COMTAN [Suspect]
     Active Substance: ENTACAPONE
     Indication: PARKINSON^S DISEASE
     Dosage: STRENGTH: 200 MG
     Route: 065
  2. COMTAN [Suspect]
     Active Substance: ENTACAPONE
     Indication: DEMENTIA ALZHEIMER^S TYPE

REACTIONS (3)
  - Dementia Alzheimer^s type [Unknown]
  - Parkinson^s disease [Unknown]
  - Product availability issue [Unknown]
